FAERS Safety Report 17106341 (Version 2)
Quarter: 2020Q1

REPORT INFORMATION
  Report Type: Spontaneous
  Country: IT (occurrence: IT)
  Receive Date: 20191203
  Receipt Date: 20200103
  Transmission Date: 20200409
  Serious: Yes (Other)
  Sender: FDA-Public Use
  Company Number: IT-ASTRAZENECA-2019SF70706

PATIENT
  Sex: Female

DRUGS (2)
  1. TAGRISSO [Suspect]
     Active Substance: OSIMERTINIB
     Indication: NON-SMALL CELL LUNG CANCER STAGE IV
     Route: 048
     Dates: start: 20190704, end: 20191120
  2. DELTACORTENE [Concomitant]
     Active Substance: PREDNISONE
     Route: 065

REACTIONS (4)
  - Dyspnoea [Unknown]
  - Respiratory failure [Unknown]
  - Malignant neoplasm progression [Unknown]
  - Metastases to liver [Unknown]
